FAERS Safety Report 9123117 (Version 1)
Quarter: 2013Q1

REPORT INFORMATION
  Report Type: Spontaneous
  Country: US (occurrence: None)
  Receive Date: 20130225
  Receipt Date: 20130225
  Transmission Date: 20140127
  Serious: Yes (Hospitalization)
  Sender: FDA-Public Use
  Company Number: None

PATIENT
  Age: 39 Year
  Sex: Female
  Weight: 83 kg

DRUGS (1)
  1. NOVOLOG [Suspect]
     Dosage: 100UNIT/ML VIAL CONTINUOUS SQ
     Route: 058

REACTIONS (5)
  - Diabetic ketoacidosis [None]
  - Product quality issue [None]
  - Product counterfeit [None]
  - Product quality issue [None]
  - Product odour abnormal [None]
